FAERS Safety Report 8849462 (Version 1)
Quarter: 2012Q4

REPORT INFORMATION
  Report Type: Report from Study
  Country: JP (occurrence: JP)
  Receive Date: 20121019
  Receipt Date: 20121019
  Transmission Date: 20130627
  Serious: Yes (Hospitalization, Other)
  Sender: FDA-Public Use
  Company Number: JP-VERTEX PHARMACEUTICAL INC.-AE-2012-006080

PATIENT
  Age: 62 Year
  Sex: Female

DRUGS (10)
  1. VX-950 [Suspect]
     Indication: HEPATITIS C
     Dosage: 1500 mg, qd
     Route: 048
     Dates: start: 20120106, end: 20120220
  2. VX-950 [Suspect]
     Dosage: 1000 mg, qd
     Route: 048
     Dates: start: 20120221, end: 20120301
  3. RIBAVIRIN [Suspect]
     Indication: HEPATITIS C
     Dosage: 600 mg, qd
     Route: 048
     Dates: start: 20120106, end: 20120215
  4. RIBAVIRIN [Suspect]
     Dosage: 200 mg, qd
     Route: 048
     Dates: start: 20120216, end: 20120301
  5. RIBAVIRIN [Suspect]
     Dosage: 400 mg, qd
     Route: 048
     Dates: start: 20120322, end: 20120613
  6. RIBAVIRIN [Suspect]
     Dosage: 600 mg, qd
     Route: 048
     Dates: start: 20120614
  7. PEGINTERFERON ALFA-2B [Suspect]
     Indication: HEPATITIS C
     Dosage: 100 ?g, qw
     Route: 058
     Dates: start: 20120106, end: 20120222
  8. PEGINTERFERON ALFA-2B [Suspect]
     Dosage: 80 ?g, qw
     Route: 058
     Dates: start: 20120223, end: 20120229
  9. PEGINTERFERON ALFA-2B [Suspect]
     Dosage: 100 ?g, qw
     Route: 058
     Dates: start: 20120315
  10. TALION OD                       /01587402/ [Concomitant]
     Dosage: 10 mg, qd
     Route: 048
     Dates: start: 20120105, end: 20120219

REACTIONS (4)
  - Bronchitis [Recovered/Resolved]
  - Decreased appetite [Recovered/Resolved]
  - Haemoglobin decreased [Recovered/Resolved]
  - Nausea [Recovered/Resolved]
